FAERS Safety Report 18483692 (Version 1)
Quarter: 2020Q4

REPORT INFORMATION
  Report Type: Spontaneous
  Country: DE (occurrence: DE)
  Receive Date: 20201110
  Receipt Date: 20201110
  Transmission Date: 20210114
  Serious: Yes (Death, Other)
  Sender: FDA-Public Use
  Company Number: DE-MICRO LABS LIMITED-ML2020-03313

PATIENT
  Age: 27 Year
  Sex: Male

DRUGS (6)
  1. CAFFEINE CITRATE. [Suspect]
     Active Substance: CAFFEINE CITRATE
  2. 4-MEC (4-METHYLETHCATHINONE) [Suspect]
     Active Substance: 4-METHYLETHCATHINONE
  3. MXE (METHOXETAMINE) [Suspect]
     Active Substance: METHOXETAMINE
  4. .ALPHA.-PYRROLIDINOPENTIOPHENONE [Suspect]
     Active Substance: .ALPHA.-PYRROLIDINOPENTIOPHENONE
  5. MDPV (METHYLENEDIOXYPYROVALERONE) [Suspect]
     Active Substance: METHYLENEDIOXYPYROVALERONE
  6. ALCOHOL. [Suspect]
     Active Substance: ALCOHOL

REACTIONS (2)
  - Toxicity to various agents [Fatal]
  - Drug abuse [Unknown]
